FAERS Safety Report 20148599 (Version 8)
Quarter: 2023Q2

REPORT INFORMATION
  Report Type: Report from Study
  Country: US (occurrence: US)
  Receive Date: 20211204
  Receipt Date: 20230403
  Transmission Date: 20230722
  Serious: No
  Sender: FDA-Public Use
  Company Number: US-NOVARTISTESTPH-NVSC2021US273440

PATIENT
  Sex: Female

DRUGS (3)
  1. ENTRESTO [Suspect]
     Active Substance: SACUBITRIL\VALSARTAN
     Indication: Cardiac failure chronic
     Dosage: 50 MG, BID (24/26 MG)
     Route: 048
  2. ENTRESTO [Suspect]
     Active Substance: SACUBITRIL\VALSARTAN
     Indication: Cardiac failure congestive
  3. ASPIRIN [Concomitant]
     Active Substance: ASPIRIN
     Indication: Product used for unknown indication
     Dosage: UNK
     Route: 065

REACTIONS (14)
  - Weight increased [Unknown]
  - Heart rate increased [Unknown]
  - Weight fluctuation [Unknown]
  - Peripheral swelling [Unknown]
  - Platelet count abnormal [Unknown]
  - Contusion [Unknown]
  - Sleep disorder [Unknown]
  - Hypotension [Unknown]
  - Abdominal distension [Unknown]
  - Fatigue [Unknown]
  - Product dispensing error [Unknown]
  - Metabolic disorder [Unknown]
  - Blood uric acid increased [Unknown]
  - Platelet count decreased [Unknown]
